FAERS Safety Report 11839845 (Version 1)
Quarter: 2015Q4

REPORT INFORMATION
  Report Type: Spontaneous
  Country: US (occurrence: None)
  Receive Date: 20151215
  Receipt Date: 20151215
  Transmission Date: 20160305
  Serious: No
  Sender: FDA-Public Use
  Company Number: None

PATIENT
  Age: 22 Year
  Sex: Female
  Weight: 44.45 kg

DRUGS (7)
  1. CARAFATE [Concomitant]
     Active Substance: SUCRALFATE
  2. PRILOSEC [Concomitant]
     Active Substance: OMEPRAZOLE MAGNESIUM
  3. METAMUCIL [Concomitant]
     Active Substance: PLANTAGO SEED
  4. REGLAN [Suspect]
     Active Substance: METOCLOPRAMIDE HYDROCHLORIDE
     Indication: ULCER
     Dosage: 1 PILL
     Route: 048
     Dates: start: 20151208, end: 20151212
  5. DIAZEPAM. [Concomitant]
     Active Substance: DIAZEPAM
  6. AMETHIA LO [Concomitant]
     Active Substance: ETHINYL ESTRADIOL\LEVONORGESTREL
  7. REGLAN [Suspect]
     Active Substance: METOCLOPRAMIDE HYDROCHLORIDE
     Indication: BILIARY TRACT DISORDER
     Dosage: 1 PILL
     Route: 048
     Dates: start: 20151208, end: 20151212

REACTIONS (16)
  - Fatigue [None]
  - Impaired driving ability [None]
  - Pollakiuria [None]
  - Depression [None]
  - Abdominal pain [None]
  - Tremor [None]
  - Insomnia [None]
  - Asthenia [None]
  - Apathy [None]
  - Chills [None]
  - Hyperhidrosis [None]
  - Irritability [None]
  - Somnolence [None]
  - Muscular weakness [None]
  - Muscle twitching [None]
  - Gait disturbance [None]

NARRATIVE: CASE EVENT DATE: 20151208
